FAERS Safety Report 24785614 (Version 1)
Quarter: 2024Q4

REPORT INFORMATION
  Report Type: Spontaneous
  Country: US (occurrence: None)
  Receive Date: 20241228
  Receipt Date: 20241228
  Transmission Date: 20250115
  Serious: No
  Sender: Public
  Company Number: None

PATIENT
  Age: 53 Year
  Sex: Female
  Weight: 65.25 kg

DRUGS (1)
  1. QULIPTA [Suspect]
     Active Substance: ATOGEPANT
     Indication: Migraine prophylaxis
     Dosage: 1 TABLET DAILY ORAL
     Route: 048
     Dates: start: 20241120, end: 20241219

REACTIONS (5)
  - Brain fog [None]
  - Depression [None]
  - Emotional disorder [None]
  - Stress [None]
  - Therapy cessation [None]

NARRATIVE: CASE EVENT DATE: 20241214
